FAERS Safety Report 5627552-8 (Version None)
Quarter: 2008Q1

REPORT INFORMATION
  Report Type: 
  Country: None (occurrence: None)
  Receive Date: 20080215
  Receipt Date: 20071207
  Transmission Date: 20080703
  Serious: No
  Sender: FDA-Public Use
  Company Number: A0697949A

PATIENT
  Age: 70 Year
  Sex: Male

DRUGS (6)
  1. COREG CR [Suspect]
     Dosage: 20MG PER DAY
     Route: 048
     Dates: start: 20071205
  2. RED YEAST RICE [Concomitant]
  3. VARDENAFIL [Concomitant]
  4. MINOCYCLINE HCL [Concomitant]
  5. L-CARNITINE [Concomitant]
  6. CO Q10 [Concomitant]

REACTIONS (1)
  - DIZZINESS [None]
